FAERS Safety Report 6905123-0 (Version None)
Quarter: 2010Q3

REPORT INFORMATION
  Report Type: 
  Country: None (occurrence: None)
  Receive Date: 20100804
  Receipt Date: 20090930
  Transmission Date: 20110219
  Serious: No
  Sender: FDA-Public Use
  Company Number: US-PFIZER INC-2009243386

PATIENT
  Sex: Male
  Weight: 90.703 kg

DRUGS (6)
  1. LYRICA [Suspect]
     Indication: SCIATICA
     Dosage: FREQUENCY: 3X/DAY, EVERYDAY;
     Route: 048
  2. AMLODIPINE [Concomitant]
     Indication: HYPERTENSION
     Dosage: 10 MG, 1X/DAY
  3. PAROXETINE [Concomitant]
     Indication: PANIC ATTACK
     Dosage: 45 MG, 1X/DAY
  4. PLAVIX [Concomitant]
     Indication: ANTICOAGULANT THERAPY
     Dosage: 75 MG, UNK
  5. BENICAR [Concomitant]
     Indication: HYPERTENSION
     Dosage: 40 MG, UNK
  6. OMEPRAZOLE [Concomitant]
     Indication: GASTROOESOPHAGEAL REFLUX DISEASE
     Dosage: 20 MG, UNK

REACTIONS (4)
  - ASTHENIA [None]
  - CONSTIPATION [None]
  - FATIGUE [None]
  - WEIGHT INCREASED [None]
